FAERS Safety Report 6761536-1 (Version None)
Quarter: 2010Q2

REPORT INFORMATION
  Report Type: 
  Country: None (occurrence: None)
  Receive Date: 20100607
  Receipt Date: 20100525
  Transmission Date: 20101027
  Serious: Yes (Other)
  Sender: FDA-Public Use
  Company Number: US-GDP-10408170

PATIENT
  Age: 62 Year
  Sex: Female

DRUGS (3)
  1. ORACEA [Suspect]
     Indication: SEBORRHOEIC DERMATITIS
     Dosage: 40 MG QD ORAL
     Route: 048
     Dates: start: 20100426
  2. XANAX [Concomitant]
  3. ESTRACE [Concomitant]

REACTIONS (3)
  - ABDOMINAL PAIN UPPER [None]
  - CLOSTRIDIAL INFECTION [None]
  - DIARRHOEA [None]
